FAERS Safety Report 6684979-3 (Version None)
Quarter: 2010Q2

REPORT INFORMATION
  Report Type: 
  Country: None (occurrence: None)
  Receive Date: 20100416
  Receipt Date: 20100406
  Transmission Date: 20101027
  Serious: Yes (Hospitalization)
  Sender: FDA-Public Use
  Company Number: US-AMGEN-QUU404182

PATIENT
  Sex: Male

DRUGS (2)
  1. ENBREL [Suspect]
     Indication: PSORIATIC ARTHROPATHY
     Route: 058
     Dates: start: 20010101
  2. ENBREL [Suspect]
     Indication: PSORIASIS

REACTIONS (21)
  - ABDOMINAL DISTENSION [None]
  - ABDOMINAL OPERATION [None]
  - ARTHRALGIA [None]
  - BACK PAIN [None]
  - BURNING SENSATION [None]
  - CARTILAGE INJURY [None]
  - DECREASED APPETITE [None]
  - DRUG INEFFECTIVE [None]
  - DYSSTASIA [None]
  - ERUCTATION [None]
  - GAIT DISTURBANCE [None]
  - GASTRIC MUCOSAL HYPERTROPHY [None]
  - GASTROINTESTINAL PAIN [None]
  - HIP ARTHROPLASTY [None]
  - HYPOAESTHESIA [None]
  - ILEUS [None]
  - MENISCUS LESION [None]
  - RASH GENERALISED [None]
  - RENAL FAILURE [None]
  - TENDON OPERATION [None]
  - VOMITING [None]
